FAERS Safety Report 8256683-1 (Version None)
Quarter: 2012Q2

REPORT INFORMATION
  Report Type: 
  Country: None (occurrence: None)
  Receive Date: 20120403
  Receipt Date: 20120326
  Transmission Date: 20120825
  Serious: No
  Sender: FDA-Public Use
  Company Number: US-B.I. PHARMACEUTICALS,INC./RIDGEFIELD-2012-BP-05705BP

PATIENT
  Sex: Male

DRUGS (11)
  1. ADVAIR DISKUS 100/50 [Concomitant]
     Indication: CHRONIC OBSTRUCTIVE PULMONARY DISEASE
  2. VIRAMUNE [Concomitant]
     Indication: HIV INFECTION
  3. ATORVASTATIN [Concomitant]
     Indication: BLOOD CHOLESTEROL INCREASED
  4. VIREAD [Concomitant]
     Indication: HIV INFECTION
     Dates: start: 20020101
  5. PRADAXA [Suspect]
     Indication: ATRIAL FIBRILLATION
     Dosage: 300 MG
     Route: 048
     Dates: start: 20111201
  6. LEXIVA [Concomitant]
     Indication: HIV INFECTION
     Dates: start: 20020101
  7. NEXIUM [Concomitant]
     Indication: GASTROOESOPHAGEAL REFLUX DISEASE
  8. ANDROGEL [Concomitant]
     Indication: BLOOD TESTOSTERONE DECREASED
     Dates: start: 20020101
  9. HYTRIN [Concomitant]
     Indication: URINARY TRACT DISORDER
  10. OXYCONTIN [Concomitant]
     Indication: ARTHRALGIA
  11. PERCOCET [Concomitant]
     Indication: ARTHRALGIA

REACTIONS (1)
  - ARTHRALGIA [None]
